FAERS Safety Report 4796392-4 (Version None)
Quarter: 2005Q4

REPORT INFORMATION
  Report Type: 
  Country: None (occurrence: None)
  Receive Date: 20051007
  Receipt Date: 20050927
  Transmission Date: 20060501
  Serious: Yes (Other)
  Sender: FDA-Public Use
  Company Number: 2005134368

PATIENT
  Sex: Female

DRUGS (1)
  1. LISTERINE ANTISEPTIC MOUTHWASH (MENTHOL, METHYL SALICYLATE, EUCALYPTOL [Suspect]
     Dosage: UNSPECIFIED AMT, A FEW TIMES A DAY, ORAL TOPICAL
     Route: 048
     Dates: start: 20020101

REACTIONS (1)
  - DRUG DEPENDENCE [None]
